FAERS Safety Report 13494143 (Version 1)
Quarter: 2017Q2

REPORT INFORMATION
  Report Type: Spontaneous
  Country: US (occurrence: US)
  Receive Date: 20170428
  Receipt Date: 20170428
  Transmission Date: 20170830
  Serious: No
  Sender: FDA-Public Use
  Company Number: US-ALKERMES INC.-ALK-2016-002501

PATIENT
  Age: 25 Year
  Sex: Male
  Weight: 85.71 kg

DRUGS (1)
  1. VIVITROL [Suspect]
     Active Substance: NALTREXONE
     Indication: DRUG USE DISORDER
     Dosage: 380 MG, QMO
     Route: 030
     Dates: start: 20160721

REACTIONS (11)
  - Abdominal pain upper [Recovered/Resolved]
  - Chromaturia [Recovered/Resolved]
  - Drug withdrawal syndrome [Recovered/Resolved]
  - Specific gravity urine abnormal [Recovered/Resolved]
  - Dermatitis contact [Recovered/Resolved]
  - Opiates positive [Recovered/Resolved]
  - Diarrhoea [Recovered/Resolved]
  - Rash [Recovered/Resolved]
  - Creatinine urine abnormal [Recovered/Resolved]
  - Blood urine present [Recovered/Resolved]
  - Drug use disorder [Recovered/Resolved]

NARRATIVE: CASE EVENT DATE: 201607
